FAERS Safety Report 10065341 (Version 3)
Quarter: 2015Q2

REPORT INFORMATION
  Report Type: Spontaneous
  Country: US (occurrence: US)
  Receive Date: 20140408
  Receipt Date: 20150527
  Transmission Date: 20150821
  Serious: Yes (Death, Life-Threatening, Hospitalization, Other)
  Sender: FDA-Public Use
  Company Number: US-MERCK-1404USA004093

PATIENT
  Sex: Male
  Weight: 82.86 kg

DRUGS (2)
  1. VICTOZA [Suspect]
     Active Substance: LIRAGLUTIDE
     Indication: TYPE 2 DIABETES MELLITUS
     Dosage: 0.6 - 1.8 MG, QD
     Dates: start: 20101018, end: 20110723
  2. JANUVIA [Suspect]
     Active Substance: SITAGLIPTIN PHOSPHATE
     Indication: TYPE 2 DIABETES MELLITUS
     Dosage: 100 MG, QD
     Route: 048
     Dates: start: 20071005, end: 20120204

REACTIONS (39)
  - Metastases to peritoneum [Unknown]
  - Metastases to spleen [Unknown]
  - Metastases to lung [Unknown]
  - Prostatomegaly [Unknown]
  - Spinal osteoarthritis [Unknown]
  - Contusion [Unknown]
  - Aortic arteriosclerosis [Unknown]
  - Anaemia [Unknown]
  - Urinary incontinence [Recovering/Resolving]
  - Decreased appetite [Unknown]
  - Pancreatic carcinoma metastatic [Fatal]
  - Ventriculo-peritoneal shunt [Unknown]
  - Balance disorder [Unknown]
  - Diverticulum [Unknown]
  - Renal cyst [Unknown]
  - Mastoid disorder [Unknown]
  - Large intestine polyp [Recovered/Resolved]
  - Pulmonary embolism [Unknown]
  - Single photon emission computerised tomogram abnormal [Unknown]
  - Nephrolithiasis [Unknown]
  - Cholelithiasis [Unknown]
  - Metastases to kidney [Unknown]
  - Axillary pain [Unknown]
  - Renal infarct [Unknown]
  - Hypertriglyceridaemia [Unknown]
  - Headache [Recovering/Resolving]
  - Back pain [Not Recovered/Not Resolved]
  - Metastases to liver [Unknown]
  - Normal pressure hydrocephalus [Unknown]
  - Large intestinal polypectomy [Recovered/Resolved]
  - Deep vein thrombosis [Unknown]
  - Musculoskeletal pain [Unknown]
  - Diabetes mellitus inadequate control [Unknown]
  - Fall [Unknown]
  - Musculoskeletal pain [Unknown]
  - Splenic infarction [Unknown]
  - Gait disturbance [Recovering/Resolving]
  - Hyperlipidaemia [Unknown]
  - Neuropathy peripheral [Unknown]

NARRATIVE: CASE EVENT DATE: 200912
